FAERS Safety Report 6855570-0 (Version None)
Quarter: 2010Q3

REPORT INFORMATION
  Report Type: 
  Country: None (occurrence: None)
  Receive Date: 20100719
  Receipt Date: 20100712
  Transmission Date: 20110219
  Serious: Yes (Hospitalization, Other)
  Sender: FDA-Public Use
  Company Number: US-TEVA-241186USA

PATIENT
  Age: 46 Year
  Sex: Female

DRUGS (7)
  1. SERTRALINE HCL [Suspect]
     Indication: DEPRESSION
  2. FENTANYL [Interacting]
     Dosage: 50UG
     Route: 042
  3. MIDAZOLAM HCL [Concomitant]
  4. FLUMENAZIL [Concomitant]
  5. LORAZEPAM [Concomitant]
  6. DIAZEPAM [Concomitant]
  7. PROPOFOL [Concomitant]

REACTIONS (2)
  - DRUG INTERACTION [None]
  - SEROTONIN SYNDROME [None]
